FAERS Safety Report 5218162-5 (Version None)
Quarter: 2007Q1

REPORT INFORMATION
  Report Type: 
  Country: None (occurrence: None)
  Receive Date: 20070124
  Receipt Date: 20051208
  Transmission Date: 20070707
  Serious: Yes (Other)
  Sender: FDA-Public Use
  Company Number: AU-PFIZER INC-2005165746

PATIENT
  Sex: Female
  Weight: 92 kg

DRUGS (4)
  1. DILANTIN [Suspect]
     Indication: EPILEPSY
     Route: 048
  2. SOLONE [Concomitant]
     Route: 048
  3. PHENOBARBITONE [Concomitant]
     Route: 048
  4. E-MYCIN [Concomitant]
     Route: 048

REACTIONS (2)
  - CONVULSION [None]
  - PHARMACEUTICAL PRODUCT COMPLAINT [None]
